FAERS Safety Report 15366239 (Version 4)
Quarter: 2020Q1

REPORT INFORMATION
  Report Type: Spontaneous
  Country: US (occurrence: US)
  Receive Date: 20180910
  Receipt Date: 20200211
  Transmission Date: 20200409
  Serious: Yes (Hospitalization, Other)
  Sender: FDA-Public Use
  Company Number: US-SA-2018SA248985

PATIENT
  Age: 82 Year
  Sex: Male

DRUGS (5)
  1. PRALUENT [Suspect]
     Active Substance: ALIROCUMAB
     Indication: TYPE IIA HYPERLIPIDAEMIA
     Dosage: 300 MG, QM
     Route: 058
     Dates: start: 201805
  2. FLAGYL [Concomitant]
     Active Substance: METRONIDAZOLE\METRONIDAZOLE HYDROCHLORIDE
  3. LEVAQUIN [Concomitant]
     Active Substance: LEVOFLOXACIN
  4. PRALUENT [Suspect]
     Active Substance: ALIROCUMAB
     Dosage: 75 MG/ML
     Dates: start: 201907, end: 201908
  5. REPATHA [Concomitant]
     Active Substance: EVOLOCUMAB

REACTIONS (8)
  - Sputum increased [Unknown]
  - Mass [Unknown]
  - Dyspnoea [Unknown]
  - Respiratory failure [Unknown]
  - Central nervous system lesion [Recovering/Resolving]
  - Organising pneumonia [Unknown]
  - Encephalopathy [Unknown]
  - Coccidioidomycosis [Unknown]

NARRATIVE: CASE EVENT DATE: 2018
